FAERS Safety Report 13414858 (Version 3)
Quarter: 2023Q1

REPORT INFORMATION
  Report Type: Spontaneous
  Country: US (occurrence: US)
  Receive Date: 20170406
  Receipt Date: 20230329
  Transmission Date: 20230418
  Serious: No
  Sender: FDA-Public Use
  Company Number: US-JNJFOC-20170318959

PATIENT
  Sex: Male

DRUGS (2)
  1. RISPERDAL [Suspect]
     Active Substance: RISPERIDONE
     Indication: Schizophrenia
     Dosage: VARYING DOSES OF 2 AND 4 MG
     Route: 048
     Dates: start: 20040313, end: 20080630
  2. RISPERIDONE [Suspect]
     Active Substance: RISPERIDONE
     Indication: Schizophrenia
     Dosage: 2 MG AND 4 MG
     Route: 048
     Dates: start: 20080804, end: 20161014

REACTIONS (2)
  - Gynaecomastia [Unknown]
  - Emotional distress [Unknown]
